FAERS Safety Report 9190634 (Version 3)
Quarter: 2014Q1

REPORT INFORMATION
  Report Type: Spontaneous
  Country: US (occurrence: None)
  Receive Date: 20120703
  Receipt Date: 20130107
  Transmission Date: 20141002
  Serious: Yes (Other)
  Sender: FDA-Public Use
  Company Number: PHEH2012US007671

PATIENT
  Age: 28 Year
  Sex: Female
  Weight: 81.1 kg

DRUGS (3)
  1. GILENYA [Suspect]
     Indication: MULTIPLE SCLEROSIS
     Dosage: 1 DF, QD,ORAL
     Route: 048
     Dates: start: 20120330, end: 20120810
  2. YAZ (DROSPIRENONE, ETHINYLESTRADIOL) [Concomitant]
  3. EFFEXOR (VENLAFAXINE HYDROCHLORIDE) [Concomitant]

REACTIONS (6)
  - Genital herpes [None]
  - Gastritis [None]
  - Diarrhoea [None]
  - Genital rash [None]
  - Vomiting [None]
  - Nausea [None]
